FAERS Safety Report 17103403 (Version 1)
Quarter: 2019Q4

REPORT INFORMATION
  Report Type: Spontaneous
  Country: GB (occurrence: GB)
  Receive Date: 20191203
  Receipt Date: 20191203
  Transmission Date: 20200122
  Serious: Yes (Other)
  Sender: FDA-Public Use
  Company Number: GB-HRAPH01-201900934

PATIENT
  Sex: Female

DRUGS (1)
  1. ELLAONE [Suspect]
     Active Substance: ULIPRISTAL ACETATE
     Indication: POST COITAL CONTRACEPTION

REACTIONS (7)
  - Breast pain [Unknown]
  - Depressed mood [Unknown]
  - Nausea [Unknown]
  - Suicidal ideation [Unknown]
  - Headache [Unknown]
  - Fatigue [Unknown]
  - Menorrhagia [Recovered/Resolved]
